FAERS Safety Report 5267012-X (Version None)
Quarter: 2007Q1

REPORT INFORMATION
  Report Type: 
  Country: None (occurrence: None)
  Receive Date: 20070316
  Receipt Date: 20070305
  Transmission Date: 20070707
  Serious: Yes (Hospitalization, Other)
  Sender: FDA-Public Use
  Company Number: PHNU2006DE03184

PATIENT
  Sex: Female

DRUGS (5)
  1. TEGRETOL [Suspect]
     Indication: EPILEPSY
     Dosage: 400-0-400 MG/DAY
     Route: 048
     Dates: start: 19850101
  2. TEGRETOL [Suspect]
     Dosage: 400-0-800 MG/DAY
     Route: 048
  3. TEGRETOL [Suspect]
     Dosage: 1-0-1 TABLET/DAY
     Route: 048
  4. PRIMIDONE [Concomitant]
  5. KEPPRA [Concomitant]
     Dosage: 2-0-1 DF/DAY

REACTIONS (5)
  - CONVULSION [None]
  - FALL [None]
  - FATIGUE [None]
  - HALLUCINATION [None]
  - MYOCARDIAL INFARCTION [None]
